FAERS Safety Report 17004693 (Version 3)
Quarter: 2019Q4

REPORT INFORMATION
  Report Type: Spontaneous
  Country: US (occurrence: US)
  Receive Date: 20191107
  Receipt Date: 20191202
  Transmission Date: 20200122
  Serious: No
  Sender: FDA-Public Use
  Company Number: US-PFIZER INC-2019375385

PATIENT
  Age: 82 Year
  Sex: Female
  Weight: 57.15 kg

DRUGS (2)
  1. SKELAXIN [Suspect]
     Active Substance: METAXALONE
     Indication: MUSCLE RELAXANT THERAPY
     Dosage: 800 MG, 2X/DAY
     Route: 048
  2. SKELAXIN [Suspect]
     Active Substance: METAXALONE
     Dosage: 800 MG, 2X/DAY (EVERY 12 HOURS)
     Route: 048
     Dates: start: 20190904

REACTIONS (1)
  - Off label use [Unknown]
